FAERS Safety Report 21858815 (Version 2)
Quarter: 2024Q1

REPORT INFORMATION
  Report Type: Other
  Country: CA (occurrence: CA)
  Receive Date: 20230113
  Receipt Date: 20240326
  Transmission Date: 20240409
  Serious: Yes (Other)
  Sender: FDA-Public Use
  Company Number: CA-Appco Pharma LLC-2136688

PATIENT
  Age: 74 Year
  Sex: Female

DRUGS (1)
  1. METRONIDAZOLE [Suspect]
     Active Substance: METRONIDAZOLE
     Indication: Inflammatory bowel disease
     Route: 065

REACTIONS (2)
  - Nystagmus [Not Recovered/Not Resolved]
  - Neurotoxicity [Recovering/Resolving]
